FAERS Safety Report 14335432 (Version 1)
Quarter: 2017Q4

REPORT INFORMATION
  Report Type: Spontaneous
  Country: US (occurrence: US)
  Receive Date: 20171229
  Receipt Date: 20171229
  Transmission Date: 20180321
  Serious: No
  Sender: FDA-Public Use
  Company Number: PHEH2017US041640

PATIENT
  Sex: Female

DRUGS (2)
  1. OMEPRAZOLE DELAYED RELEASE CAPSULES [Suspect]
     Active Substance: OMEPRAZOLE
     Indication: GASTROOESOPHAGEAL REFLUX DISEASE
     Route: 065
  2. OMEPRAZOLE DELAYED RELEASE CAPSULES [Suspect]
     Active Substance: OMEPRAZOLE
     Indication: EOSINOPHILIC OESOPHAGITIS

REACTIONS (1)
  - Milk allergy [Unknown]
